FAERS Safety Report 23470956 (Version 1)
Quarter: 2024Q1

REPORT INFORMATION
  Report Type: Report from Study
  Country: US (occurrence: US)
  Receive Date: 20240202
  Receipt Date: 20240202
  Transmission Date: 20240409
  Serious: Yes (Other)
  Sender: FDA-Public Use
  Company Number: US-AMGEN-USASL2024016185

PATIENT
  Age: 65 Year
  Sex: Female

DRUGS (3)
  1. PROLIA [Suspect]
     Active Substance: DENOSUMAB
     Indication: Osteoporosis
     Dosage: UNK
     Route: 065
  2. MIRAPEX [Concomitant]
     Active Substance: PRAMIPEXOLE DIHYDROCHLORIDE
     Dosage: 0.25 MILLIGRAM, QHS 90 TABS 3RF
  3. MIRAPEX [Concomitant]
     Active Substance: PRAMIPEXOLE DIHYDROCHLORIDE
     Dosage: 0.25 MILLIGRAM, TID 270 TABS 3RF

REACTIONS (20)
  - Angioedema [Unknown]
  - Oropharyngeal blistering [Unknown]
  - Carotid artery stenosis [Unknown]
  - Spinal compression fracture [Unknown]
  - Candida infection [Unknown]
  - Blood alkaline phosphatase increased [Unknown]
  - Muscle spasms [Unknown]
  - Pulmonary mass [Unknown]
  - Facial pain [Unknown]
  - Chest pain [Unknown]
  - Generalised anxiety disorder [Unknown]
  - Glucose tolerance impaired [Unknown]
  - Vitamin D deficiency [Unknown]
  - Diplopia [Unknown]
  - Insomnia [Unknown]
  - Emphysema [Unknown]
  - Arthralgia [Unknown]
  - Blood pressure fluctuation [Unknown]
  - Chronic obstructive pulmonary disease [Unknown]
  - Asthma [Unknown]

NARRATIVE: CASE EVENT DATE: 20210915
